FAERS Safety Report 9644162 (Version 2)
Quarter: 2013Q4

REPORT INFORMATION
  Report Type: Report from Study
  Country: GR (occurrence: GR)
  Receive Date: 20131024
  Receipt Date: 20131222
  Transmission Date: 20140711
  Serious: Yes (Other)
  Sender: FDA-Public Use
  Company Number: GR-ROCHE-1292663

PATIENT
  Age: 64 Year
  Sex: Female
  Weight: 85 kg

DRUGS (5)
  1. ROACTEMRA [Suspect]
     Indication: RHEUMATOID ARTHRITIS
     Route: 042
     Dates: start: 2011
  2. ARAVA [Concomitant]
     Indication: RHEUMATOID ARTHRITIS
     Route: 065
     Dates: start: 2011, end: 201310
  3. SALOSPIR [Concomitant]
     Route: 065
     Dates: start: 201309
  4. MEDROL [Concomitant]
     Indication: PAIN
     Route: 065
  5. CORETEC [Concomitant]
     Indication: HYPERTENSION
     Route: 048

REACTIONS (5)
  - Pain [Not Recovered/Not Resolved]
  - White blood cell count decreased [Not Recovered/Not Resolved]
  - Abdominal pain upper [Unknown]
  - Hyperhidrosis [Unknown]
  - Limb deformity [Unknown]
